FAERS Safety Report 21892756 (Version 3)
Quarter: 2025Q3

REPORT INFORMATION
  Report Type: Report from Study
  Country: US (occurrence: US)
  Receive Date: 20230120
  Receipt Date: 20250710
  Transmission Date: 20251021
  Serious: Yes (Death, Other)
  Sender: JAZZ
  Company Number: US-GW PHARMA-2023-US-001284

PATIENT
  Sex: Male

DRUGS (12)
  1. EPIDIOLEX [Suspect]
     Active Substance: CANNABIDIOL
     Indication: Idiopathic generalised epilepsy
     Dosage: 0.8 MILLILITER, BID
     Route: 048
     Dates: start: 20220611
  2. CALCIUM\CHOLECALCIFEROL [Concomitant]
     Active Substance: CALCIUM\CHOLECALCIFEROL
  3. CHILDREN VITAMIN [Concomitant]
  4. CLOBAZAM [Concomitant]
     Active Substance: CLOBAZAM
  5. CYPROHEPTADINE HYDROCHLORIDE [Concomitant]
     Active Substance: CYPROHEPTADINE HYDROCHLORIDE
  6. FAMOTIDINE [Concomitant]
     Active Substance: FAMOTIDINE
  7. GABAPENTIN [Concomitant]
     Active Substance: GABAPENTIN
  8. KLONOPIN [Concomitant]
     Active Substance: CLONAZEPAM
  9. MILK OF MAGNESIA [Concomitant]
     Active Substance: MAGNESIUM HYDROXIDE
  10. VALPROIC ACID [Concomitant]
     Active Substance: VALPROIC ACID
  11. VIMPAT [Concomitant]
     Active Substance: LACOSAMIDE
  12. ZYRTEC [Concomitant]
     Active Substance: CETIRIZINE HYDROCHLORIDE

REACTIONS (2)
  - Death [Fatal]
  - Off label use [Unknown]
